FAERS Safety Report 4421666-6 (Version None)
Quarter: 2004Q3

REPORT INFORMATION
  Report Type: 
  Country: None (occurrence: None)
  Receive Date: 20040809
  Receipt Date: 20040809
  Transmission Date: 20050211
  Serious: Yes (Other)
  Sender: FDA-Public Use
  Company Number: None

PATIENT
  Age: 32 Year
  Sex: Male

DRUGS (4)
  1. MARCAINE HCL W/ EPINEPHRINE [Suspect]
  2. VERSED [Suspect]
  3. FENTANYL [Suspect]
  4. DIPRIVAN [Suspect]

REACTIONS (6)
  - ANAESTHETIC COMPLICATION [None]
  - DYSKINESIA [None]
  - HEART RATE INCREASED [None]
  - LOSS OF CONSCIOUSNESS [None]
  - MUSCLE TIGHTNESS [None]
  - TACHYPNOEA [None]
